FAERS Safety Report 25159628 (Version 1)
Quarter: 2025Q2

REPORT INFORMATION
  Report Type: Other
  Country: GB (occurrence: GB)
  Receive Date: 20250404
  Receipt Date: 20250404
  Transmission Date: 20250716
  Serious: Yes (Other)
  Sender: MACLEODS
  Company Number: None

PATIENT

DRUGS (1)
  1. ESOMEPRAZOLE [Suspect]
     Active Substance: ESOMEPRAZOLE
     Indication: Product used for unknown indication
     Route: 065

REACTIONS (12)
  - Gastrooesophageal reflux disease [Unknown]
  - Confusional state [Recovering/Resolving]
  - Breast pain [Unknown]
  - Nipple pain [Unknown]
  - Oesophageal food impaction [Unknown]
  - Tenderness [Recovering/Resolving]
  - Fatigue [Unknown]
  - Pain [Unknown]
  - Abdominal distension [Unknown]
  - Alanine aminotransferase increased [Unknown]
  - Alopecia [Unknown]
  - Headache [Unknown]

NARRATIVE: CASE EVENT DATE: 20250101
